FAERS Safety Report 6006947-7 (Version None)
Quarter: 2008Q4

REPORT INFORMATION
  Report Type: 
  Country: None (occurrence: None)
  Receive Date: 20081217
  Receipt Date: 20080501
  Transmission Date: 20090506
  Serious: No
  Sender: FDA-Public Use
  Company Number: US-ASTRAZENECA-2007UW27268

PATIENT
  Age: 65 Year
  Sex: Female
  Weight: 71.2 kg

DRUGS (4)
  1. CRESTOR [Suspect]
     Indication: BLOOD CHOLESTEROL
     Route: 048
     Dates: start: 20050101, end: 20070101
  2. AVAPRO [Concomitant]
  3. SYNTHROID [Concomitant]
  4. NEXIUM [Concomitant]
     Route: 048

REACTIONS (4)
  - HYPOAESTHESIA [None]
  - MUSCULAR WEAKNESS [None]
  - PAIN IN EXTREMITY [None]
  - SENSATION OF HEAVINESS [None]
